FAERS Safety Report 6333480-5 (Version None)
Quarter: 2009Q3

REPORT INFORMATION
  Report Type: 
  Country: None (occurrence: None)
  Receive Date: 20090828
  Receipt Date: 20090820
  Transmission Date: 20100115
  Serious: Yes (Hospitalization)
  Sender: FDA-Public Use
  Company Number: JP-AMGEN-US343182

PATIENT
  Sex: Female
  Weight: 38 kg

DRUGS (15)
  1. ENBREL [Suspect]
     Indication: RHEUMATOID ARTHRITIS
     Route: 058
     Dates: start: 20090126, end: 20090316
  2. TAKEPRON [Concomitant]
     Indication: PROPHYLAXIS AGAINST GASTROINTESTINAL ULCER
     Route: 048
  3. SALIGREN [Concomitant]
     Indication: SJOGREN'S SYNDROME
     Route: 048
  4. NORVASC [Concomitant]
     Indication: HYPERTENSION
     Route: 048
  5. PREDNISOLONE [Concomitant]
     Indication: RHEUMATOID ARTHRITIS
     Route: 048
  6. PREDNISOLONE [Concomitant]
     Dosage: 40 MG; FREQUENCY NOT SPECIFIED
     Dates: start: 20031201, end: 20070101
  7. PREDNISOLONE [Concomitant]
     Dosage: 7 MG; FREQUENCY NOT SPECIFIED
     Dates: start: 20070101
  8. MOBIC [Concomitant]
     Indication: RHEUMATOID ARTHRITIS
     Route: 048
  9. ASPIRIN [Concomitant]
     Route: 048
  10. ONE-ALPHA [Concomitant]
     Indication: OSTEOPOROSIS PROPHYLAXIS
     Route: 048
  11. NEUER [Concomitant]
     Indication: PROPHYLAXIS AGAINST GASTROINTESTINAL ULCER
     Route: 048
  12. BENET [Concomitant]
     Indication: OSTEOPOROSIS PROPHYLAXIS
     Route: 048
  13. S.M. [Concomitant]
     Indication: PROPHYLAXIS AGAINST GASTROINTESTINAL ULCER
     Route: 048
  14. ISCOTIN [Concomitant]
     Indication: ANTIBIOTIC PROPHYLAXIS
     Route: 048
     Dates: start: 20090121, end: 20090531
  15. BACTRAMIN [Concomitant]
     Route: 048

REACTIONS (3)
  - DIABETES MELLITUS [None]
  - DRUG EFFECT DECREASED [None]
  - POLYMYOSITIS [None]
